FAERS Safety Report 13513920 (Version 1)
Quarter: 2017Q2

REPORT INFORMATION
  Report Type: Spontaneous
  Country: GR (occurrence: GR)
  Receive Date: 20170504
  Receipt Date: 20170504
  Transmission Date: 20170830
  Serious: Yes (Other)
  Sender: FDA-Public Use
  Company Number: GR-MYLANLABS-2017M1026287

PATIENT

DRUGS (2)
  1. DAPAGLIFLOZIN [Concomitant]
     Active Substance: DAPAGLIFLOZIN
     Indication: DIABETES MELLITUS
     Dosage: UNK
  2. METFORMIN [Suspect]
     Active Substance: METFORMIN HYDROCHLORIDE
     Indication: DIABETES MELLITUS
     Dosage: UNK

REACTIONS (6)
  - Treatment noncompliance [Recovered/Resolved]
  - Overweight [Recovering/Resolving]
  - Hypertension [Recovering/Resolving]
  - Condition aggravated [Recovering/Resolving]
  - Diabetes mellitus [Recovering/Resolving]
  - Dyslipidaemia [Recovering/Resolving]
